FAERS Safety Report 4304127-4 (Version None)
Quarter: 2004Q1

REPORT INFORMATION
  Report Type: 
  Country: None (occurrence: None)
  Receive Date: 20040224
  Receipt Date: 20040210
  Transmission Date: 20041129
  Serious: Yes (Other)
  Sender: FDA-Public Use
  Company Number: 2004-02-0645

PATIENT
  Age: 17 Year
  Sex: Female
  Weight: 99.7913 kg

DRUGS (2)
  1. CORICIDIN [Suspect]
     Dosage: 20 TABLETS ORAL 1 DOSE (S)
     Route: 048
  2. ALCOHOL [Concomitant]

REACTIONS (2)
  - ALCOHOL USE [None]
  - OVERDOSE [None]
